FAERS Safety Report 20006970 (Version 1)
Quarter: 2021Q4

REPORT INFORMATION
  Report Type: Other
  Country: NL (occurrence: NL)
  Receive Date: 20211028
  Receipt Date: 20211028
  Transmission Date: 20220303
  Serious: Yes (Other)
  Sender: FDA-Public Use
  Company Number: NL-ROCHE-2940499

PATIENT

DRUGS (1)
  1. CAPECITABINE [Suspect]
     Active Substance: CAPECITABINE
     Indication: Rectal cancer recurrent
     Route: 048

REACTIONS (8)
  - Cardiotoxicity [Unknown]
  - Diarrhoea [Unknown]
  - Arteriospasm coronary [Unknown]
  - Haematotoxicity [Unknown]
  - Skin toxicity [Unknown]
  - Gastrointestinal toxicity [Unknown]
  - Neurotoxicity [Unknown]
  - Thrombocytopenia [Unknown]
